FAERS Safety Report 9416345 (Version 1)
Quarter: 2013Q3

REPORT INFORMATION
  Report Type: Spontaneous
  Country: FR (occurrence: None)
  Receive Date: 20130719
  Receipt Date: 20130719
  Transmission Date: 20140515
  Serious: Yes (Life-Threatening)
  Sender: FDA-Public Use
  Company Number: DSM-2013-00661

PATIENT
  Age: 80 Year
  Sex: Male

DRUGS (4)
  1. OLMETEC [Suspect]
     Indication: HYPERTENSION
     Dosage: 20 MG 1 IN 1 D
     Dates: end: 20130522
  2. CALCIPARINE [Suspect]
     Indication: ATRIAL FIBRILLATION
     Dosage: 3 DOSAGE FORMS 1 IN 1 D SUBCUTANEOUS
     Route: 058
     Dates: start: 20130513, end: 20130518
  3. PREVISCAN [Suspect]
     Indication: ATRIAL FIBRILLATION
     Route: 048
     Dates: start: 20130514, end: 20130520
  4. DIAMICRON [Suspect]
     Indication: TYPE 2 DIABETES MELLITUS
     Dosage: 60 MG 2 IN 1 D
     Route: 048

REACTIONS (6)
  - Muscle haemorrhage [None]
  - Anaemia [None]
  - Activated partial thromboplastin time prolonged [None]
  - International normalised ratio increased [None]
  - Renal failure [None]
  - Condition aggravated [None]
